FAERS Safety Report 7418490-9 (Version None)
Quarter: 2011Q2

REPORT INFORMATION
  Report Type: 
  Country: None (occurrence: None)
  Receive Date: 20110415
  Receipt Date: 20110411
  Transmission Date: 20111010
  Serious: Yes (Death, Life-Threatening, Hospitalization)
  Sender: FDA-Public Use
  Company Number: FR-MERCK-1104FRA00055

PATIENT
  Age: 36 Year
  Sex: Male

DRUGS (26)
  1. EMEND [Suspect]
     Route: 048
     Dates: start: 20091109, end: 20091111
  2. OXYCODONE HYDROCHLORIDE [Concomitant]
     Route: 065
     Dates: start: 20091109, end: 20091110
  3. METRONIDAZOLE [Concomitant]
     Route: 065
  4. CIPROFLOXACIN HCL [Suspect]
     Route: 048
     Dates: start: 20091101
  5. DEXCHLORPHENIRAMINE MALEATE [Suspect]
     Indication: PREMEDICATION
     Route: 042
     Dates: start: 20091113, end: 20091113
  6. DEXTROSE AND POTASSIUM CHLORIDE AND SODIUM CHLORIDE [Concomitant]
     Route: 065
     Dates: start: 20091109, end: 20091113
  7. ACETAMINOPHEN [Concomitant]
     Route: 065
     Dates: start: 20091110, end: 20091113
  8. FLUCONAZOLE [Suspect]
     Route: 048
     Dates: start: 20091101
  9. AMITRIPTYLINE HCL [Suspect]
     Route: 048
     Dates: start: 20091110, end: 20091111
  10. HALOPERIDOL [Suspect]
     Indication: NAUSEA
     Route: 048
     Dates: start: 20091112, end: 20091113
  11. BROMAZEPAM [Concomitant]
     Route: 065
     Dates: start: 20091109, end: 20091113
  12. EMEND [Suspect]
     Route: 048
     Dates: start: 20091110, end: 20091113
  13. OXYCODONE HYDROCHLORIDE [Concomitant]
     Route: 065
     Dates: start: 20091109, end: 20091113
  14. METOCLOPRAMIDE HYDROCHLORIDE [Concomitant]
     Route: 065
     Dates: start: 20091110, end: 20091113
  15. TRAMADOL HCL [Suspect]
     Indication: PAIN
     Route: 048
     Dates: start: 20091113, end: 20091113
  16. TRAMADOL HYDROCHLORIDE [Suspect]
     Route: 048
     Dates: start: 20091113, end: 20091113
  17. GABAPENTIN [Suspect]
     Route: 048
     Dates: start: 20091109, end: 20091113
  18. LIDOCAINE [Concomitant]
     Route: 065
     Dates: start: 20091110, end: 20091111
  19. FILGRASTIM [Concomitant]
     Route: 065
     Dates: start: 20091111, end: 20091113
  20. AMOXICILLIN AND CLAVULANATE POTASSIUM [Suspect]
     Route: 048
     Dates: start: 20091117, end: 20091121
  21. AMITRIPTYLINE HCL [Suspect]
     Route: 048
     Dates: start: 20091109, end: 20091111
  22. CARBOPLATIN [Suspect]
     Indication: EXTRAGONADAL PRIMARY GERM CELL TUMOUR MIXED STAGE I
     Route: 042
     Dates: start: 20091109, end: 20091111
  23. ONDANSETRON HYDROCHLORIDE [Concomitant]
     Route: 065
     Dates: start: 20091110, end: 20091113
  24. ETOPOSIDE [Suspect]
     Indication: EXTRAGONADAL PRIMARY GERM CELL TUMOUR MIXED STAGE I
     Route: 042
     Dates: start: 20091110, end: 20091111
  25. MORPHINE SULFATE [Concomitant]
     Route: 065
     Dates: start: 20091110, end: 20091113
  26. HYDROCORTISONE [Concomitant]
     Route: 065
     Dates: start: 20091113, end: 20091113

REACTIONS (2)
  - ILEITIS [None]
  - FEBRILE BONE MARROW APLASIA [None]
